FAERS Safety Report 20153254 (Version 4)
Quarter: 2024Q4

REPORT INFORMATION
  Report Type: Spontaneous
  Country: CA (occurrence: CA)
  Receive Date: 20211206
  Receipt Date: 20241121
  Transmission Date: 20250115
  Serious: Yes (Life-Threatening)
  Sender: CSL BEHRING
  Company Number: CA-BEH-2021138967

PATIENT
  Age: 22 Year
  Sex: Female
  Weight: 114.9 kg

DRUGS (6)
  1. ALBUREX [Suspect]
     Active Substance: ALBUMIN HUMAN
     Indication: Guillain-Barre syndrome
     Dosage: 300 MILLILITER
     Route: 042
     Dates: start: 20211127, end: 20211127
  2. ACETAMINOPHEN [Concomitant]
     Active Substance: ACETAMINOPHEN
     Dosage: 650 MILLIGRAM
     Route: 048
     Dates: start: 20211111
  3. CLONAZEPAM [Concomitant]
     Active Substance: CLONAZEPAM
     Dosage: 0.25 MILLIGRAM
     Route: 048
     Dates: start: 20211123
  4. DALTEPARIN [Concomitant]
     Active Substance: DALTEPARIN
     Dosage: 7500 INTERNATIONAL UNIT
     Route: 058
     Dates: start: 20211105
  5. GABAPENTIN [Concomitant]
     Active Substance: GABAPENTIN
     Dosage: 200 MILLIGRAM
     Route: 050
     Dates: start: 20211116
  6. HYDROMORPHONE [Concomitant]
     Active Substance: HYDROMORPHONE
     Dosage: 2 MILLIGRAM
     Route: 042
     Dates: start: 20211117

REACTIONS (19)
  - Anaphylactic reaction [Recovered/Resolved]
  - Pseudomonas test positive [Recovered/Resolved]
  - Urticaria [Recovered/Resolved]
  - Hypoxia [Recovered/Resolved]
  - Lip oedema [Recovered/Resolved]
  - Tongue oedema [Recovered/Resolved]
  - Conjunctival oedema [Recovered/Resolved]
  - Hyperhidrosis [Recovered/Resolved]
  - Flushing [Recovered/Resolved]
  - Oxygen saturation decreased [Recovered/Resolved]
  - Lip discolouration [Recovered/Resolved]
  - Obstructive airways disorder [Recovered/Resolved]
  - Hypotension [Recovered/Resolved]
  - Pharyngeal swelling [Recovered/Resolved]
  - Dyspnoea [Recovered/Resolved]
  - Respiratory arrest [Recovered/Resolved]
  - Anxiety [Recovered/Resolved]
  - Cyanosis [Recovered/Resolved]
  - Rash erythematous [Recovered/Resolved]

NARRATIVE: CASE EVENT DATE: 20211127
